FAERS Safety Report 6139633-3 (Version None)
Quarter: 2009Q1

REPORT INFORMATION
  Report Type: 
  Country: None (occurrence: None)
  Receive Date: 20090330
  Receipt Date: 20090330
  Transmission Date: 20090719
  Serious: Yes (Hospitalization)
  Sender: FDA-Public Use
  Company Number: None

PATIENT
  Age: 88 Year
  Sex: Male
  Weight: 72.57 kg

DRUGS (2)
  1. GLIPIZIDE [Suspect]
     Indication: DIABETES MELLITUS
     Dosage: 5 MG BID PO
     Route: 048
     Dates: start: 20061208, end: 20081206
  2. INSULIN [Suspect]
     Dosage: 5 UNITS BID SQ
     Route: 058
     Dates: start: 20050928, end: 20081206

REACTIONS (1)
  - HYPOGLYCAEMIA [None]
